FAERS Safety Report 12137266 (Version 1)
Quarter: 2016Q1

REPORT INFORMATION
  Report Type: Spontaneous
  Country: US (occurrence: None)
  Receive Date: 20160301
  Receipt Date: 20160301
  Transmission Date: 20160526
  Serious: Yes (Life-Threatening, Hospitalization)
  Sender: FDA-Public Use
  Company Number: None

PATIENT
  Age: 47 Year
  Sex: Male
  Weight: 117.03 kg

DRUGS (7)
  1. ASPIRIN. [Concomitant]
     Active Substance: ASPIRIN
  2. METFORMIN [Concomitant]
     Active Substance: METFORMIN HYDROCHLORIDE
  3. LISINOPRIL. [Concomitant]
     Active Substance: LISINOPRIL
  4. JARDIANCE [Suspect]
     Active Substance: EMPAGLIFLOZIN
     Indication: TYPE 2 DIABETES MELLITUS
     Dosage: 1 TABLET QD ORAL
     Route: 048
     Dates: start: 20151214, end: 20151218
  5. GABAPENTIN. [Concomitant]
     Active Substance: GABAPENTIN
  6. METANX B VITAMIN COMPLEX [Concomitant]
  7. PARASTATIN [Concomitant]

REACTIONS (2)
  - Diabetic ketoacidosis [None]
  - Acute kidney injury [None]

NARRATIVE: CASE EVENT DATE: 20151218
